FAERS Safety Report 12178981 (Version 1)
Quarter: 2016Q1

REPORT INFORMATION
  Report Type: Spontaneous
  Country: US (occurrence: None)
  Receive Date: 20160314
  Receipt Date: 20160314
  Transmission Date: 20160526
  Serious: Yes (Disabling, Other)
  Sender: FDA-Public Use
  Company Number: None

PATIENT
  Age: 62 Year
  Sex: Female
  Weight: 67.59 kg

DRUGS (13)
  1. METHOTREXATE [Concomitant]
     Active Substance: METHOTREXATE
  2. MAXALT [Concomitant]
     Active Substance: RIZATRIPTAN BENZOATE
  3. PROBIOTIC [Concomitant]
     Active Substance: PROBIOTICS NOS
  4. LYRICA [Concomitant]
     Active Substance: PREGABALIN
  5. TRAMADOL. [Concomitant]
     Active Substance: TRAMADOL
  6. CALCIUM [Concomitant]
     Active Substance: CALCIUM
  7. VITAMIN D [Concomitant]
     Active Substance: CHOLECALCIFEROL
  8. ATORVASTATIN [Concomitant]
     Active Substance: ATORVASTATIN
  9. PREDNISONE. [Concomitant]
     Active Substance: PREDNISONE
  10. COENZYME Q10 [Concomitant]
     Active Substance: UBIDECARENONE
  11. FOLIC ACID. [Concomitant]
     Active Substance: FOLIC ACID
  12. PROLIA [Suspect]
     Active Substance: DENOSUMAB
     Indication: OSTEOPENIA
     Dosage: ONE TIME INTO THE MUSCLE
     Route: 030
     Dates: start: 20160204
  13. FENTANYL. [Concomitant]
     Active Substance: FENTANYL

REACTIONS (10)
  - Pain [None]
  - Hypersomnia [None]
  - Pain in jaw [None]
  - Back pain [None]
  - Fatigue [None]
  - Emotional disorder [None]
  - Gait disturbance [None]
  - Facial pain [None]
  - Tooth loss [None]
  - Drug ineffective [None]

NARRATIVE: CASE EVENT DATE: 20160204
